FAERS Safety Report 4443169-5 (Version None)
Quarter: 2004Q3

REPORT INFORMATION
  Report Type: 
  Country: None (occurrence: None)
  Receive Date: 20040903
  Receipt Date: 20040702
  Transmission Date: 20050211
  Serious: Yes (Other)
  Sender: FDA-Public Use
  Company Number: 2004UW13762

PATIENT
  Age: 69 Year
  Sex: Male
  Weight: 67.1324 kg

DRUGS (8)
  1. CRESTOR [Suspect]
     Indication: BLOOD CHOLESTEROL INCREASED
     Dosage: 10 MG QD PO
     Route: 048
  2. CRESTOR [Suspect]
     Indication: BLOOD CHOLESTEROL INCREASED
     Dosage: 20 MG QD PO
     Route: 048
  3. NORVASC [Concomitant]
  4. FOLIC ACID [Concomitant]
  5. IMURAN [Concomitant]
  6. ASACOL [Concomitant]
  7. ENTOCORT EC [Concomitant]
  8. PEPCID [Concomitant]

REACTIONS (2)
  - MIGRAINE [None]
  - MYALGIA [None]
